FAERS Safety Report 7276219-1 (Version None)
Quarter: 2011Q1

REPORT INFORMATION
  Report Type: 
  Country: None (occurrence: None)
  Receive Date: 20110204
  Receipt Date: 20110128
  Transmission Date: 20110831
  Serious: Yes (Hospitalization, Other)
  Sender: FDA-Public Use
  Company Number: PHHO2011DK02129

PATIENT
  Sex: Male
  Weight: 89.9 kg

DRUGS (3)
  1. TACROLIMUS [Concomitant]
     Indication: RENAL TRANSPLANT
     Dosage: 2.5 MG, QD
     Dates: start: 20090217
  2. NO TREATMENT RECEIVED [Suspect]
  3. MYFORTIC [Suspect]
     Indication: RENAL TRANSPLANT
     Dosage: 720 + 360 MG
     Route: 048
     Dates: start: 20081217

REACTIONS (3)
  - HEADACHE [None]
  - NAUSEA [None]
  - MUSCLE TIGHTNESS [None]
